FAERS Safety Report 5409513-7 (Version None)
Quarter: 2007Q3

REPORT INFORMATION
  Report Type: 
  Country: None (occurrence: None)
  Receive Date: 20070808
  Receipt Date: 20070808
  Transmission Date: 20080115
  Serious: No
  Sender: FDA-Public Use
  Company Number: None

PATIENT
  Age: 40 Year
  Sex: Male
  Weight: 89.8122 kg

DRUGS (2)
  1. LEVAQUIN [Suspect]
     Indication: PNEUMONIA LEGIONELLA
     Dosage: 750 MG ONCE A DAY PO
     Route: 048
     Dates: start: 20070728, end: 20070731
  2. CLINDAMYCIN HCL [Concomitant]

REACTIONS (7)
  - DEPRESSION [None]
  - FATIGUE [None]
  - FEELING ABNORMAL [None]
  - HOT FLUSH [None]
  - MUSCLE SPASMS [None]
  - NIGHT SWEATS [None]
  - PARAESTHESIA [None]
